FAERS Safety Report 24591986 (Version 2)
Quarter: 2024Q4

REPORT INFORMATION
  Report Type: Spontaneous
  Country: US (occurrence: US)
  Receive Date: 20241108
  Receipt Date: 20241110
  Transmission Date: 20250115
  Serious: No
  Sender: JOHNSON AND JOHNSON
  Company Number: US-JNJFOC-20241112889

PATIENT
  Sex: Male

DRUGS (5)
  1. SPRAVATO [Suspect]
     Active Substance: ESKETAMINE
     Indication: Post-traumatic stress disorder
  2. SPRAVATO [Suspect]
     Active Substance: ESKETAMINE
     Indication: Depression
  3. SPRAVATO [Suspect]
     Active Substance: ESKETAMINE
     Indication: Generalised anxiety disorder
  4. PRAZOSIN [Concomitant]
     Active Substance: PRAZOSIN\PRAZOSIN HYDROCHLORIDE
     Indication: Nightmare
     Route: 065
  5. AUVELITY [Concomitant]
     Active Substance: BUPROPION HYDROCHLORIDE\DEXTROMETHORPHAN HYDROBROMIDE
     Route: 065

REACTIONS (5)
  - Drug ineffective [Unknown]
  - Anxiety [Unknown]
  - Abnormal dreams [Unknown]
  - Skin odour abnormal [Unknown]
  - Dysgeusia [Unknown]
